FAERS Safety Report 20791983 (Version 1)
Quarter: 2022Q2

REPORT INFORMATION
  Report Type: Spontaneous
  Country: US (occurrence: None)
  Receive Date: 20220505
  Receipt Date: 20220505
  Transmission Date: 20220720
  Serious: No
  Sender: FDA-Public Use
  Company Number: None

PATIENT
  Age: 74 Year
  Sex: Male
  Weight: 89.36 kg

DRUGS (13)
  1. LENALIDOMIDE [Suspect]
     Active Substance: LENALIDOMIDE
     Indication: Plasma cell myeloma
     Dosage: FREQUENCY : DAILY;?
     Route: 048
     Dates: start: 202109
  2. DEXAMETHASONE [Concomitant]
     Active Substance: DEXAMETHASONE
  3. VITAMIN D [Concomitant]
     Active Substance: VITAMIN D NOS
  4. CARVEDILOL [Concomitant]
     Active Substance: CARVEDILOL
  5. POTASSIUM CHLORIDE [Concomitant]
     Active Substance: POTASSIUM CHLORIDE
  6. VIMPAT [Concomitant]
     Active Substance: LACOSAMIDE
  7. AMLODIPINE [Concomitant]
     Active Substance: AMLODIPINE BESYLATE
  8. LOSARTAN [Concomitant]
     Active Substance: LOSARTAN
  9. TRAMADOL [Concomitant]
     Active Substance: TRAMADOL
  10. LEVETIRACETAM [Concomitant]
     Active Substance: LEVETIRACETAM
  11. ACETAMINOPHEN [Concomitant]
     Active Substance: ACETAMINOPHEN
  12. BACTRIM DS [Concomitant]
     Active Substance: SULFAMETHOXAZOLE\TRIMETHOPRIM
  13. METFORMIN [Concomitant]
     Active Substance: METFORMIN HYDROCHLORIDE

REACTIONS (1)
  - Cerebral haemorrhage [None]
